FAERS Safety Report 17201435 (Version 1)
Quarter: 2019Q4

REPORT INFORMATION
  Report Type: Spontaneous
  Country: CN (occurrence: CN)
  Receive Date: 20191226
  Receipt Date: 20191226
  Transmission Date: 20200122
  Serious: Yes (Disabling)
  Sender: FDA-Public Use
  Company Number: CN-BAXTER-2019BAX026057

PATIENT
  Age: 44 Year
  Sex: Female
  Weight: 44 kg

DRUGS (9)
  1. AZITHROMYCIN ANHYDROUS. [Concomitant]
     Active Substance: AZITHROMYCIN ANHYDROUS
     Indication: INFECTION PROPHYLAXIS
     Dosage: TABLETS
     Route: 048
     Dates: start: 20191201, end: 20191201
  2. 0.9% SODIUM CHLORIDE INJECTION [Suspect]
     Active Substance: SODIUM CHLORIDE
     Dosage: DOSE REINTRODUCED, METHOTREXATE + NS
     Route: 041
     Dates: start: 201912, end: 201912
  3. HOLOXAN [Suspect]
     Active Substance: IFOSFAMIDE
     Indication: OSTEOSARCOMA
     Dosage: HOLOXAN 3.5 G + NS 500 ML
     Route: 041
     Dates: start: 20191121, end: 20191125
  4. 0.9% SODIUM CHLORIDE INJECTION [Suspect]
     Active Substance: SODIUM CHLORIDE
     Indication: MEDICATION DILUTION
     Dosage: HOLOXAN 3.5 G + NS 500 ML
     Route: 041
     Dates: start: 20191121, end: 20191125
  5. 0.9% SODIUM CHLORIDE INJECTION [Suspect]
     Active Substance: SODIUM CHLORIDE
     Dosage: METHOTREXATE 6 G + NS 300 ML
     Route: 041
     Dates: start: 20191114, end: 20191114
  6. METHOTREXATE. [Suspect]
     Active Substance: METHOTREXATE
     Indication: OSTEOSARCOMA
     Dosage: METHOTREXATE 6 G + NS 300 ML
     Route: 041
     Dates: start: 20191114, end: 20191114
  7. HOLOXAN [Suspect]
     Active Substance: IFOSFAMIDE
     Dosage: DOSE RE-INTRODUCED, HOLOXAN + NS
     Route: 041
     Dates: start: 201912, end: 201912
  8. 0.9% SODIUM CHLORIDE INJECTION [Suspect]
     Active Substance: SODIUM CHLORIDE
     Dosage: DOSE RE-INTRODUCED, HOLOXAN + NS
     Route: 041
     Dates: start: 201912, end: 201912
  9. METHOTREXATE. [Suspect]
     Active Substance: METHOTREXATE
     Dosage: DOSE RE-INTRODUCED, METHOTREXATE + NS
     Route: 041
     Dates: start: 201912, end: 201912

REACTIONS (1)
  - Bone marrow failure [Recovering/Resolving]

NARRATIVE: CASE EVENT DATE: 20191201
